FAERS Safety Report 9473710 (Version 2)
Quarter: 2013Q3

REPORT INFORMATION
  Report Type: Spontaneous
  Country: US (occurrence: US)
  Receive Date: 20130823
  Receipt Date: 20130823
  Transmission Date: 20140515
  Serious: No
  Sender: FDA-Public Use
  Company Number: US-BRISTOL-MYERS SQUIBB COMPANY-16917122

PATIENT
  Age: 52 Year
  Sex: Male
  Weight: 77 kg

DRUGS (3)
  1. SPRYCEL [Suspect]
     Indication: ACUTE LYMPHOCYTIC LEUKAEMIA
     Route: 048
     Dates: start: 20120829
  2. INSULIN [Concomitant]
     Dosage: INSULIN LANUTS ; 1 DOSAGE FORM= 30 UNITS
  3. NOVOLOG [Concomitant]
     Dosage: SLIDING SCALE

REACTIONS (1)
  - Muscular weakness [Recovered/Resolved]
